FAERS Safety Report 9882116 (Version 1)
Quarter: 2014Q1

REPORT INFORMATION
  Report Type: Spontaneous
  Country: DK (occurrence: JP)
  Receive Date: 20140207
  Receipt Date: 20140207
  Transmission Date: 20141002
  Serious: Yes (Other)
  Sender: FDA-Public Use
  Company Number: JP-FRI-1000053969

PATIENT
  Age: 2 Decade
  Sex: Male

DRUGS (3)
  1. LEXAPRO [Suspect]
     Route: 048
  2. ABILIFY [Suspect]
     Route: 048
  3. ABILIT [Concomitant]
     Route: 048

REACTIONS (1)
  - Blood glucose increased [Unknown]
